FAERS Safety Report 6873142-9 (Version None)
Quarter: 2010Q3

REPORT INFORMATION
  Report Type: 
  Country: None (occurrence: None)
  Receive Date: 20100721
  Receipt Date: 20100713
  Transmission Date: 20110219
  Serious: Yes (Hospitalization)
  Sender: FDA-Public Use
  Company Number: KADN20100148

PATIENT
  Age: 72 Year
  Sex: Female
  Weight: 63.5036 kg

DRUGS (4)
  1. KADIAN [Suspect]
     Indication: BACK PAIN
     Dosage: 60 MG, 2 IN 1 D, PER ORAL; 15 MG, 2 IN 1 D, PER ORAL
     Route: 048
     Dates: start: 20050101
  2. MORPHINE SULFATE IR [Suspect]
     Indication: BACK PAIN
     Dosage: 30 MG, 2-3 TIMES PER WEEK, PER ORAL
     Route: 048
     Dates: start: 20050101
  3. NEURONTIN [Suspect]
     Indication: BACK PAIN
     Dosage: 600 MG, 3 IN 1 D, PER ORAL
     Route: 048
     Dates: start: 20050101
  4. BLOOD PRESSURE MEDICATIONS [Concomitant]

REACTIONS (1)
  - PNEUMONIA ASPIRATION [None]
